FAERS Safety Report 9004581 (Version 1)
Quarter: 2012Q4

REPORT INFORMATION
  Report Type: Spontaneous
  Country: US (occurrence: None)
  Receive Date: 20121226
  Receipt Date: 20121226
  Transmission Date: 20130627
  Serious: Yes (Hospitalization, Other)
  Sender: FDA-Public Use
  Company Number: DSA_47666_2011

PATIENT
  Age: 57 Year
  Sex: Female

DRUGS (10)
  1. FLAGYL [Suspect]
     Indication: DIVERTICULITIS
     Dosage: (DF Oral)
     Route: 048
     Dates: start: 20110818, end: 20110901
  2. WELLBUTRIN SR [Suspect]
     Indication: DEPRESSION
     Route: 048
     Dates: start: 2009
  3. BLINDED VACCINE INJECTION [Suspect]
     Indication: PRODUCT USED FOR UNKNOWN INDICATION
     Dosage: (DF Intramuscular)
     Route: 030
     Dates: start: 20101005, end: 20101005
  4. ALENDRONATE SODIUM [Suspect]
     Indication: OSTEOPENIA
     Route: 048
     Dates: start: 201002
  5. HEPARIN-CALCIUM [Suspect]
     Indication: OSTEOPENIA
     Route: 048
     Dates: start: 2005
  6. VYTORIN [Suspect]
     Indication: DYSLIPIDAEMIA
     Dosage: (DF Oral)
     Route: 048
     Dates: start: 2000
  7. AUGMENTIN [Suspect]
     Indication: DIVERTICULITIS
     Dosage: (DF Oral)
     Route: 048
     Dates: start: 20110818, end: 20110901
  8. ONDANSETRON HYDROCHLORIDE [Suspect]
     Indication: DIVERTICULITIS
     Dosage: (DF Oral)
     Route: 048
     Dates: start: 20110818, end: 20110822
  9. HYDROCODONE HYDROCHLORIDE W/PARACETAMOL [Suspect]
     Indication: DIVERTICULITIS
     Dosage: (DF)
     Dates: start: 20110818, end: 20110822
  10. INFLUENZA VIRUS VACCINE POLYVAL [Concomitant]

REACTIONS (3)
  - Diverticulitis [None]
  - Anastomotic leak [None]
  - Diarrhoea [None]
